FAERS Safety Report 10364487 (Version 1)
Quarter: 2014Q3

REPORT INFORMATION
  Report Type: Spontaneous
  Country: US (occurrence: US)
  Receive Date: 20140806
  Receipt Date: 20140806
  Transmission Date: 20150326
  Serious: No
  Sender: FDA-Public Use
  Company Number: US-ASTRAZENECA-2014SE54478

PATIENT
  Age: 49 Year
  Sex: Female

DRUGS (9)
  1. COENZYME Q10 [Suspect]
     Active Substance: UBIDECARENONE
     Route: 065
  2. AMLODIPINE [Concomitant]
     Active Substance: AMLODIPINE BESYLATE
     Indication: HYPERTENSION
     Dates: start: 2012
  3. CRESTOR [Suspect]
     Active Substance: ROSUVASTATIN CALCIUM
     Indication: LOW DENSITY LIPOPROTEIN DECREASED
     Route: 048
     Dates: start: 201404, end: 201404
  4. CRESTOR [Suspect]
     Active Substance: ROSUVASTATIN CALCIUM
     Indication: LOW DENSITY LIPOPROTEIN DECREASED
     Route: 048
     Dates: start: 201404, end: 201404
  5. CRESTOR [Suspect]
     Active Substance: ROSUVASTATIN CALCIUM
     Indication: LOW DENSITY LIPOPROTEIN DECREASED
     Route: 048
     Dates: start: 20140604, end: 201406
  6. CRESTOR [Suspect]
     Active Substance: ROSUVASTATIN CALCIUM
     Indication: LOW DENSITY LIPOPROTEIN DECREASED
     Route: 048
     Dates: start: 201402, end: 201404
  7. BYSTOLIC [Concomitant]
     Active Substance: NEBIVOLOL HYDROCHLORIDE
     Indication: HYPERTENSION
     Dates: start: 2012
  8. COENZYME Q10 [Suspect]
     Active Substance: UBIDECARENONE
     Dosage: DIFFERENT BRAND OF THE COENZYME Q10
     Route: 065
  9. CRESTOR [Suspect]
     Active Substance: ROSUVASTATIN CALCIUM
     Indication: LOW DENSITY LIPOPROTEIN DECREASED
     Route: 048
     Dates: start: 201407

REACTIONS (4)
  - Abdominal pain lower [Unknown]
  - Myalgia [Not Recovered/Not Resolved]
  - Rash [Recovered/Resolved]
  - Intentional product misuse [Unknown]

NARRATIVE: CASE EVENT DATE: 2014
